FAERS Safety Report 5861176-2 (Version None)
Quarter: 2008Q3

REPORT INFORMATION
  Report Type: 
  Country: None (occurrence: None)
  Receive Date: 20080827
  Receipt Date: 20080314
  Transmission Date: 20090109
  Serious: No
  Sender: FDA-Public Use
  Company Number: US-ABBOTT-08P-163-0442477-00

PATIENT
  Sex: Male
  Weight: 74.002 kg

DRUGS (16)
  1. COATED PDS [Suspect]
     Indication: BLOOD CHOLESTEROL
     Route: 048
  2. COATED PDS [Suspect]
     Route: 048
  3. COATED PDS [Suspect]
     Route: 048
  4. COATED PDS [Suspect]
     Route: 048
  5. ACETYLSALICYLIC ACID SRT [Concomitant]
     Indication: DRUG USE FOR UNKNOWN INDICATION
  6. CARVEDILOL [Concomitant]
     Indication: DRUG USE FOR UNKNOWN INDICATION
  7. CLOPIDOGREL [Concomitant]
     Indication: DRUG USE FOR UNKNOWN INDICATION
  8. HYDROCHLOROTHIAZIDE [Concomitant]
     Indication: DRUG USE FOR UNKNOWN INDICATION
  9. VALSARTAN [Concomitant]
     Indication: DRUG USE FOR UNKNOWN INDICATION
  10. FISH OIL [Concomitant]
     Indication: DRUG USE FOR UNKNOWN INDICATION
  11. PIOGLITAZONE [Concomitant]
     Indication: DRUG USE FOR UNKNOWN INDICATION
  12. OMEPRAZOLE [Concomitant]
     Indication: DRUG USE FOR UNKNOWN INDICATION
  13. INEGY [Concomitant]
     Indication: DRUG USE FOR UNKNOWN INDICATION
  14. OXYGEN [Concomitant]
     Indication: CHRONIC OBSTRUCTIVE PULMONARY DISEASE
  15. COMBIVENT [Concomitant]
     Indication: DRUG USE FOR UNKNOWN INDICATION
  16. NEBULIZER [Concomitant]
     Indication: DRUG USE FOR UNKNOWN INDICATION

REACTIONS (5)
  - DIZZINESS [None]
  - DYSPNOEA [None]
  - FLUSHING [None]
  - MOBILITY DECREASED [None]
  - TACHYCARDIA [None]
